FAERS Safety Report 8440648-0 (Version None)
Quarter: 2012Q2

REPORT INFORMATION
  Report Type: 
  Country: None (occurrence: None)
  Receive Date: 20120615
  Receipt Date: 20120613
  Transmission Date: 20120825
  Serious: Yes (Hospitalization, Disabling, Other)
  Sender: FDA-Public Use
  Company Number: US-MERCK-1003USA01796

PATIENT
  Age: 67 Year
  Sex: Female
  Weight: 66 kg

DRUGS (6)
  1. ATIVAN [Concomitant]
     Indication: SLEEP DISORDER
     Route: 048
     Dates: start: 20000101
  2. FOSAMAX [Suspect]
     Indication: OSTEOPOROSIS
     Route: 048
     Dates: start: 20020101, end: 20091001
  3. FOSAMAX [Suspect]
     Route: 048
  4. PRILOSEC [Concomitant]
     Indication: GASTROOESOPHAGEAL REFLUX DISEASE
     Route: 065
  5. CORTICOSTEROIDS (UNSPECIFIED) [Concomitant]
     Indication: RHEUMATOID ARTHRITIS
     Route: 048
  6. FOSAMAX [Suspect]
     Indication: OSTEOPENIA
     Route: 048
     Dates: start: 20020101, end: 20091001

REACTIONS (84)
  - FEMUR FRACTURE [None]
  - ADVERSE DRUG REACTION [None]
  - DIARRHOEA [None]
  - CATARACT CORTICAL [None]
  - CONSTIPATION [None]
  - RADICULOPATHY [None]
  - STOMATITIS [None]
  - HYPERTENSION [None]
  - BALANCE DISORDER [None]
  - MUSCULOSKELETAL DISCOMFORT [None]
  - SYSTEMIC LUPUS ERYTHEMATOSUS [None]
  - SEPSIS [None]
  - LOW TURNOVER OSTEOPATHY [None]
  - ANXIETY [None]
  - CUTIS LAXA [None]
  - NEUROPATHY PERIPHERAL [None]
  - RAYNAUD'S PHENOMENON [None]
  - PAIN IN EXTREMITY [None]
  - TEMPOROMANDIBULAR JOINT SYNDROME [None]
  - SYNCOPE [None]
  - VITREOUS DETACHMENT [None]
  - BLOOD CHOLESTEROL INCREASED [None]
  - ARTHRITIS [None]
  - CHEST PAIN [None]
  - TOOTH ABSCESS [None]
  - OSTEONECROSIS OF JAW [None]
  - EXPOSED BONE IN JAW [None]
  - UTERINE POLYP [None]
  - MUSCULOSKELETAL PAIN [None]
  - SKIN FRAGILITY [None]
  - BLOOD PRESSURE INCREASED [None]
  - CARPAL TUNNEL SYNDROME [None]
  - DEPRESSION [None]
  - CATARACT NUCLEAR [None]
  - RESPIRATORY TRACT INFECTION [None]
  - NEPHROPATHY [None]
  - BIOPSY PERIPHERAL NERVE [None]
  - DRUG HYPERSENSITIVITY [None]
  - PERIPHERAL ISCHAEMIA [None]
  - OPTIC NERVE DISORDER [None]
  - GASTRITIS [None]
  - BACK PAIN [None]
  - OSTEOARTHRITIS [None]
  - AXONAL NEUROPATHY [None]
  - COLONIC POLYP [None]
  - SQUAMOUS CELL CARCINOMA OF SKIN [None]
  - MENTAL STATUS CHANGES [None]
  - ANAEMIA [None]
  - MIDDLE INSOMNIA [None]
  - NOCTURIA [None]
  - RHEUMATOID ARTHRITIS [None]
  - TOOTH FRACTURE [None]
  - TOOTH DISORDER [None]
  - FOOT FRACTURE [None]
  - PYREXIA [None]
  - INFECTION [None]
  - BIOPSY MUSCLE [None]
  - BLISTER [None]
  - HYPERGLYCAEMIA [None]
  - BLINDNESS UNILATERAL [None]
  - LIGAMENT SPRAIN [None]
  - NYSTAGMUS [None]
  - NODULE [None]
  - GASTROENTERITIS [None]
  - MAMMOGRAM ABNORMAL [None]
  - NAUSEA [None]
  - SINUSITIS [None]
  - COLLAGEN-VASCULAR DISEASE [None]
  - VASCULITIS [None]
  - LACERATION [None]
  - HYPERCHOLESTEROLAEMIA [None]
  - FATIGUE [None]
  - LOWER LIMB FRACTURE [None]
  - INSOMNIA [None]
  - OSTEOMYELITIS [None]
  - FALL [None]
  - COLITIS MICROSCOPIC [None]
  - QUALITY OF LIFE DECREASED [None]
  - WEIGHT DECREASED [None]
  - SPINAL OSTEOARTHRITIS [None]
  - PURPURA [None]
  - PRESUMED OCULAR HISTOPLASMOSIS SYNDROME [None]
  - PNEUMONIA [None]
  - ENDOMETRIAL HYPERPLASIA [None]
